FAERS Safety Report 4928678-4 (Version None)
Quarter: 2006Q1

REPORT INFORMATION
  Report Type: 
  Country: None (occurrence: None)
  Receive Date: 20060301
  Receipt Date: 20060223
  Transmission Date: 20060701
  Serious: Yes (Death)
  Sender: FDA-Public Use
  Company Number: US-JNJFOC-20060205493

PATIENT
  Sex: Female

DRUGS (8)
  1. INFLIXIMAB [Suspect]
     Indication: RHEUMATOID ARTHRITIS
     Route: 042
  2. CELEBREX [Concomitant]
  3. CLARITIN [Concomitant]
  4. ESTROGEN [Concomitant]
  5. VITAMIN B-12 [Concomitant]
  6. CALCIUM +D [Concomitant]
  7. ANTIBIOTICS [Concomitant]
  8. ASCORBIC ACID [Concomitant]

REACTIONS (1)
  - CARDIAC FAILURE CONGESTIVE [None]
